FAERS Safety Report 15559940 (Version 25)
Quarter: 2021Q4

REPORT INFORMATION
  Report Type: Report from Study
  Country: CO (occurrence: CO)
  Receive Date: 20181029
  Receipt Date: 20211210
  Transmission Date: 20220304
  Serious: Yes (Hospitalization, Other)
  Sender: FDA-Public Use
  Company Number: PHHY2016CO161516

PATIENT
  Age: 58 Year
  Sex: Female
  Weight: 60 kg

DRUGS (10)
  1. SANDOSTATIN LAR DEPOT [Suspect]
     Active Substance: OCTREOTIDE ACETATE
     Indication: Acromegaly
     Dosage: 20 MG, EVERY 45 DAYS
     Route: 030
     Dates: start: 20070409
  2. SANDOSTATIN LAR DEPOT [Suspect]
     Active Substance: OCTREOTIDE ACETATE
     Dosage: 20 MG, UNK (1 MONTH AND A HALF)
     Route: 030
     Dates: start: 20071122, end: 20150101
  3. SANDOSTATIN LAR DEPOT [Suspect]
     Active Substance: OCTREOTIDE ACETATE
     Dosage: 20 MG, UNK (1 MONTH AND A HALF)
     Route: 030
     Dates: start: 201609
  4. SANDOSTATIN LAR DEPOT [Suspect]
     Active Substance: OCTREOTIDE ACETATE
     Dosage: 20 MG, UNK (EVERY 2 MONTHS)
     Route: 030
     Dates: start: 201612
  5. SANDOSTATIN LAR DEPOT [Suspect]
     Active Substance: OCTREOTIDE ACETATE
     Dosage: 20 MG EVERY 2 MONTHS
     Route: 030
     Dates: start: 20170221
  6. SANDOSTATIN LAR DEPOT [Suspect]
     Active Substance: OCTREOTIDE ACETATE
     Dosage: 20 MG, (EVERY 2 MONTHS)
     Route: 030
  7. SANDOSTATIN LAR DEPOT [Suspect]
     Active Substance: OCTREOTIDE ACETATE
     Dosage: 20 MG, QMO
     Route: 030
  8. SANDOSTATIN LAR DEPOT [Suspect]
     Active Substance: OCTREOTIDE ACETATE
     Dosage: UNK (STOPPED IN JUN) (AMPOULE)
     Route: 030
  9. SANDOSTATIN LAR DEPOT [Suspect]
     Active Substance: OCTREOTIDE ACETATE
     Dosage: 20 MG (EVERY 45 DAYS)
     Route: 030
  10. METFORMIN [Suspect]
     Active Substance: METFORMIN HYDROCHLORIDE
     Indication: Diabetes mellitus
     Dosage: 850 MG, QD
     Route: 065

REACTIONS (36)
  - Colon cancer [Unknown]
  - Second primary malignancy [Unknown]
  - Anaemia [Unknown]
  - Internal haemorrhage [Unknown]
  - Weight decreased [Unknown]
  - General physical health deterioration [Unknown]
  - Hepatomegaly [Unknown]
  - Dyspepsia [Unknown]
  - Reflux gastritis [Unknown]
  - Poisoning [Unknown]
  - Diabetes mellitus [Unknown]
  - Acromegaly [Unknown]
  - Malignant neoplasm progression [Unknown]
  - Disease recurrence [Unknown]
  - Small intestine carcinoma [Unknown]
  - Lithiasis [Unknown]
  - Influenza [Unknown]
  - Gastritis [Unknown]
  - Gastrointestinal disorder [Unknown]
  - Memory impairment [Unknown]
  - Movement disorder [Unknown]
  - Depression [Unknown]
  - Hypertension [Unknown]
  - Arthralgia [Unknown]
  - Calcium metabolism disorder [Unknown]
  - Decreased immune responsiveness [Unknown]
  - Pain [Unknown]
  - Inflammation [Unknown]
  - Illness [Unknown]
  - Blood growth hormone increased [Unknown]
  - Insulin-like growth factor increased [Unknown]
  - Spinal disorder [Unknown]
  - Diarrhoea [Unknown]
  - Abdominal pain [Unknown]
  - Inappropriate schedule of product administration [Unknown]
  - Product dose omission issue [Unknown]

NARRATIVE: CASE EVENT DATE: 20161118
